FAERS Safety Report 4448864-X (Version None)
Quarter: 2004Q3

REPORT INFORMATION
  Report Type: 
  Country: None (occurrence: None)
  Receive Date: 20040909
  Receipt Date: 20040823
  Transmission Date: 20050211
  Serious: Yes (Hospitalization, Other)
  Sender: FDA-Public Use
  Company Number: USA040876268

PATIENT
  Age: 45 Year
  Sex: Female
  Weight: 100 kg

DRUGS (3)
  1. HUMULIN R [Suspect]
     Dates: start: 20030201
  2. LANTUS [Concomitant]
  3. GLUCOPHAGE [Concomitant]

REACTIONS (12)
  - ERYTHEMA [None]
  - FEELING HOT [None]
  - GASTRIC DISORDER [None]
  - INJECTION SITE BURNING [None]
  - INJECTION SITE MASS [None]
  - LEG AMPUTATION [None]
  - LOCALISED INFECTION [None]
  - SKIN DISCOLOURATION [None]
  - SURGERY [None]
  - TREATMENT NONCOMPLIANCE [None]
  - VISION BLURRED [None]
  - VISUAL DISTURBANCE [None]
